FAERS Safety Report 4631876-0 (Version None)
Quarter: 2005Q2

REPORT INFORMATION
  Report Type: 
  Country: None (occurrence: None)
  Receive Date: 20050330
  Receipt Date: 20040504
  Transmission Date: 20051028
  Serious: No
  Sender: FDA-Public Use
  Company Number: 04P-163-0259781-00

PATIENT

DRUGS (1)
  1. DEPAKENE SUSPENSION (VALPROATE SODIUM) (VALPROATE SODIUM) [Suspect]

REACTIONS (1)
  - HAEMORRHAGE [None]
